FAERS Safety Report 5740172-X (Version None)
Quarter: 2008Q2

REPORT INFORMATION
  Report Type: 
  Country: None (occurrence: None)
  Receive Date: 20080516
  Receipt Date: 20080506
  Transmission Date: 20081010
  Serious: Yes (Death, Hospitalization)
  Sender: FDA-Public Use
  Company Number: US-ABBOTT-08P-163-0451000-00

PATIENT
  Age: 48 Year
  Sex: Male

DRUGS (2)
  1. WARFARIN SODIUM [Suspect]
     Indication: DEEP VEIN THROMBOSIS
     Dosage: NOT REPORTED
  2. SERTRALINE [Concomitant]
     Indication: DRUG USE FOR UNKNOWN INDICATION

REACTIONS (3)
  - INTERNATIONAL NORMALISED RATIO INCREASED [None]
  - LEUKOCYTOCLASTIC VASCULITIS [None]
  - NEPHRITIS ALLERGIC [None]
